FAERS Safety Report 5320548-5 (Version None)
Quarter: 2007Q2

REPORT INFORMATION
  Report Type: 
  Country: None (occurrence: None)
  Receive Date: 20070502
  Receipt Date: 20070426
  Transmission Date: 20071010
  Serious: Yes (Other)
  Sender: FDA-Public Use
  Company Number: 163-20785-07040373

PATIENT
  Age: 42 Year
  Sex: Female

DRUGS (2)
  1. THALOMID [Suspect]
     Indication: METASTASIS
     Dosage: SEE IMAGE
     Route: 048
     Dates: start: 20060701, end: 20061001
  2. THALOMID [Suspect]
     Indication: METASTASIS
     Dosage: SEE IMAGE
     Route: 048
     Dates: start: 20061101

REACTIONS (1)
  - BLOOD HUMAN CHORIONIC GONADOTROPIN INCREASED [None]
